FAERS Safety Report 8809903 (Version 1)
Quarter: 2012Q4

REPORT INFORMATION
  Report Type: 
  Country: US (occurrence: US)
  Receive Date: 20120926
  Receipt Date: 20120926
  Transmission Date: 20130627
  Serious: Yes (Hospitalization, Other)
  Sender: FDA-Public Use
  Company Number: US-ELI_LILLY_AND_COMPANY-US201209004868

PATIENT
  Sex: Female

DRUGS (13)
  1. HUMULIN REGULAR [Suspect]
     Indication: TYPE 2 DIABETES MELLITUS
     Dosage: UNK UNK, bid
     Dates: start: 2010
  2. HUMULIN REGULAR [Suspect]
     Indication: TYPE 2 DIABETES MELLITUS
     Dosage: UNK, unknown
     Dates: start: 2010
  3. METFORMIN [Concomitant]
     Dosage: 1000 mg, bid
  4. METOPROLOL TARTRATE [Concomitant]
     Dosage: 50 mg, bid
  5. FENOFIBRATE [Concomitant]
     Dosage: 54 mg, qd
  6. LOSARTAN [Concomitant]
     Dosage: 100 mg, qd
  7. PLAVIX [Concomitant]
     Dosage: 75 mg, qd
  8. HYDROCHLOROTHIAZIDE [Concomitant]
     Dosage: 25 mg, qd
  9. SIMVASTATIN [Concomitant]
     Dosage: 40 mg, qd
  10. NEXIUM [Concomitant]
     Dosage: 40 mg, qd
  11. HYDRALAZINE [Concomitant]
     Dosage: 25 mg, tid
  12. BUPROPION [Concomitant]
     Dosage: 37.5 mg, bid
  13. ALPRAZOLAM [Concomitant]
     Dosage: 0.5 mg, qd

REACTIONS (5)
  - Ventricular tachycardia [Unknown]
  - Blood glucose increased [Unknown]
  - Tooth infection [Recovering/Resolving]
  - Medication error [Unknown]
  - Drug ineffective [Recovered/Resolved]
